FAERS Safety Report 6964478-1 (Version None)
Quarter: 2010Q3

REPORT INFORMATION
  Report Type: 
  Country: None (occurrence: None)
  Receive Date: 20100903
  Receipt Date: 20100824
  Transmission Date: 20110219
  Serious: Yes (Other)
  Sender: FDA-Public Use
  Company Number: FI-PFIZER INC-2010102352

PATIENT
  Age: 70 Year
  Sex: Male
  Weight: 105 kg

DRUGS (13)
  1. LYRICA [Suspect]
     Indication: SCIATICA
     Dosage: 300 MG, UNK
     Route: 048
     Dates: start: 20100725
  2. LYRICA [Suspect]
     Indication: MYELOPATHY
  3. LYRICA [Suspect]
     Indication: SPINAL DECOMPRESSION
  4. PANACOD [Concomitant]
     Indication: SCIATICA
     Dosage: 2X/DAY
  5. PANACOD [Concomitant]
     Indication: MYELOPATHY
  6. PANACOD [Concomitant]
     Indication: SPINAL DECOMPRESSION
  7. PARACETAMOL [Concomitant]
     Indication: SCIATICA
     Dosage: UNK
  8. PARACETAMOL [Concomitant]
     Indication: MYELOPATHY
  9. PARACETAMOL [Concomitant]
     Indication: SPINAL DECOMPRESSION
  10. BISOPROLOL [Concomitant]
     Indication: ATRIAL FIBRILLATION
     Dosage: UNK
  11. DIGOXIN [Concomitant]
     Indication: ATRIAL FIBRILLATION
     Dosage: UNK
  12. WARFARIN [Concomitant]
     Indication: ATRIAL FIBRILLATION
     Dosage: UNK
  13. SIMVASTATIN [Concomitant]
     Indication: ATRIAL FIBRILLATION
     Dosage: UNK

REACTIONS (2)
  - DRUG INEFFECTIVE [None]
  - FACIAL PARESIS [None]
